FAERS Safety Report 23248035 (Version 1)
Quarter: 2023Q4

REPORT INFORMATION
  Report Type: Spontaneous
  Country: US (occurrence: US)
  Receive Date: 20231130
  Receipt Date: 20231130
  Transmission Date: 20240110
  Serious: No
  Sender: FDA-Public Use
  Company Number: US-Dermavant-000918

PATIENT
  Age: 61 Year
  Sex: Male

DRUGS (2)
  1. TAPINAROF [Suspect]
     Active Substance: TAPINAROF
     Indication: Psoriasis
     Route: 061
     Dates: start: 20231019, end: 20231019
  2. DESONIDE [Concomitant]
     Active Substance: DESONIDE
     Dates: start: 20231019, end: 20231102

REACTIONS (2)
  - Nausea [Recovered/Resolved]
  - Headache [Recovered/Resolved]

NARRATIVE: CASE EVENT DATE: 20231019
